FAERS Safety Report 5140244-7 (Version None)
Quarter: 2006Q4

REPORT INFORMATION
  Report Type: 
  Country: None (occurrence: None)
  Receive Date: 20061031
  Receipt Date: 20061018
  Transmission Date: 20070319
  Serious: Yes (Other)
  Sender: FDA-Public Use
  Company Number: PHRM2006FR02885

PATIENT
  Age: 31 Year
  Sex: Female

DRUGS (2)
  1. TRILEPTAL [Suspect]
     Indication: EPILEPSY
     Dosage: 600 MG, BID
     Route: 048
     Dates: start: 20030101
  2. DEPAKENE [Concomitant]
     Route: 048
     Dates: start: 19830101

REACTIONS (11)
  - ACNE [None]
  - AGITATION [None]
  - ALOPECIA [None]
  - ANXIETY [None]
  - ARTHRALGIA [None]
  - DEPRESSION [None]
  - DYSKINESIA [None]
  - HALLUCINATION, AUDITORY [None]
  - HEART RATE INCREASED [None]
  - MENORRHAGIA [None]
  - NAUSEA [None]
